FAERS Safety Report 20651759 (Version 1)
Quarter: 2022Q1

REPORT INFORMATION
  Report Type: Spontaneous
  Country: DE (occurrence: DE)
  Receive Date: 20220330
  Receipt Date: 20220330
  Transmission Date: 20220423
  Serious: Yes (Other)
  Sender: FDA-Public Use
  Company Number: DE-JNJFOC-20220314235

PATIENT
  Age: 86 Year
  Sex: Male
  Weight: 83 kg

DRUGS (4)
  1. ERLEADA [Suspect]
     Active Substance: APALUTAMIDE
     Indication: Prostate cancer metastatic
     Dosage: 4 TABLETS
     Route: 048
     Dates: start: 202111
  2. MARCUMAR [Concomitant]
     Active Substance: PHENPROCOUMON
     Indication: Mitral valve replacement
     Dosage: ACCORDING TO INR
     Route: 065
     Dates: start: 2004
  3. ENTRESTO [Concomitant]
     Active Substance: SACUBITRIL\VALSARTAN
     Indication: Respiratory papilloma
     Dosage: 24/28 MG
     Route: 065
     Dates: start: 2020
  4. TORSEMIDE [Concomitant]
     Active Substance: TORSEMIDE
     Indication: Aortic valve incompetence
     Route: 065
     Dates: start: 2020

REACTIONS (1)
  - Platelet count increased [Not Recovered/Not Resolved]

NARRATIVE: CASE EVENT DATE: 20211101
